FAERS Safety Report 8050690-X (Version None)
Quarter: 2012Q1

REPORT INFORMATION
  Report Type: 
  Country: None (occurrence: None)
  Receive Date: 20120117
  Receipt Date: 20120117
  Transmission Date: 20120608
  Serious: Yes (Life-Threatening, Hospitalization, Disabling)
  Sender: FDA-Public Use
  Company Number: None

PATIENT
  Age: 10 Year
  Sex: Male
  Weight: 38.555 kg

DRUGS (2)
  1. AMOXICILLIN [Suspect]
     Indication: EAR INFECTION
     Dosage: 1 PILL
     Route: 048
     Dates: start: 20111219, end: 20111225
  2. ZITHROMYACIN [Concomitant]
     Indication: BRONCHITIS
     Dosage: 1 PILL
     Route: 048
     Dates: start: 20111225, end: 20111227

REACTIONS (2)
  - STEVENS-JOHNSON SYNDROME [None]
  - PNEUMONIA [None]
